FAERS Safety Report 14669236 (Version 1)
Quarter: 2018Q1

REPORT INFORMATION
  Report Type: Spontaneous
  Country: US (occurrence: US)
  Receive Date: 20180322
  Receipt Date: 20180322
  Transmission Date: 20180509
  Serious: Yes (Other)
  Sender: FDA-Public Use
  Company Number: US-TEVA-2018-US-872996

PATIENT
  Age: 38 Year
  Sex: Female

DRUGS (5)
  1. CYCLOPHOSPHAMIDE. [Suspect]
     Active Substance: CYCLOPHOSPHAMIDE
     Indication: T-CELL TYPE ACUTE LEUKAEMIA
     Dosage: CYCLIC THERAPY, CYCLE 1A, AS A PART OF HYPER-CVAD REGIMEN
     Route: 065
  2. DOXORUBICIN [Suspect]
     Active Substance: DOXORUBICIN
     Indication: T-CELL TYPE ACUTE LEUKAEMIA
     Dosage: CYCLIC THERAPY, CYCLE 1A, AS A PART OF HYPER-CVAD REGIMEN
     Route: 065
  3. ROMIDEPSIN. [Suspect]
     Active Substance: ROMIDEPSIN
     Indication: NEOPLASM PROGRESSION
     Dosage: 14 MG/M2 ON DAYS 11 AND 18 OF HYPER CVAD CYCLE 1A
     Route: 050
  4. VINCRISTINE [Suspect]
     Active Substance: VINCRISTINE
     Indication: T-CELL TYPE ACUTE LEUKAEMIA
     Dosage: CYCLIC THERAPY, CYCLE 1A, AS A PART OF HYPER-CVAD REGIMEN
     Route: 065
  5. DEXAMETHASONE. [Suspect]
     Active Substance: DEXAMETHASONE
     Indication: T-CELL TYPE ACUTE LEUKAEMIA
     Dosage: CYCLIC THERAPY, CYCLE 1A, AS A PART OF HYPER-CVAD REGIMEN
     Route: 065

REACTIONS (3)
  - Neutropenia [Unknown]
  - Tumour lysis syndrome [Unknown]
  - Orthostatic hypotension [Unknown]
